FAERS Safety Report 24646547 (Version 3)
Quarter: 2025Q4

REPORT INFORMATION
  Report Type: Report from Study
  Country: CA (occurrence: CA)
  Receive Date: 20241121
  Receipt Date: 20251128
  Transmission Date: 20260118
  Serious: Yes (Other)
  Sender: TAKEDA
  Company Number: CA-TAKEDA-2017TUS024119

PATIENT
  Age: 23 Year
  Sex: Female
  Weight: 82 kg

DRUGS (5)
  1. VEDOLIZUMAB [Suspect]
     Active Substance: VEDOLIZUMAB
     Indication: Colitis ulcerative
     Dosage: 300 MILLIGRAM
  2. VEDOLIZUMAB [Suspect]
     Active Substance: VEDOLIZUMAB
     Dosage: 300 MILLIGRAM
  3. VEDOLIZUMAB [Suspect]
     Active Substance: VEDOLIZUMAB
     Indication: Colitis ulcerative
     Dosage: 108 MILLIGRAM, Q2WEEKS
     Dates: start: 20230510
  4. PREDNISONE [Suspect]
     Active Substance: PREDNISONE
     Indication: Contraception
     Dosage: UNK
  5. PENTASA [Concomitant]
     Active Substance: MESALAMINE
     Dosage: 1 GRAM

REACTIONS (8)
  - Colitis ulcerative [Unknown]
  - Abortion spontaneous [Unknown]
  - Rectal haemorrhage [Recovered/Resolved]
  - Pregnancy [Unknown]
  - Swelling face [Recovering/Resolving]
  - Weight increased [Unknown]
  - Frequent bowel movements [Unknown]
  - Therapeutic reaction time decreased [Unknown]
